FAERS Safety Report 6144459-0 (Version None)
Quarter: 2009Q2

REPORT INFORMATION
  Report Type: 
  Country: None (occurrence: None)
  Receive Date: 20090406
  Receipt Date: 20090324
  Transmission Date: 20091009
  Serious: Yes (Death)
  Sender: FDA-Public Use
  Company Number: JP-ROCHE-616185

PATIENT
  Sex: Female
  Weight: 48 kg

DRUGS (6)
  1. PEGASYS [Suspect]
     Indication: HEPATITIS C
     Route: 058
     Dates: start: 20081011, end: 20090207
  2. COPEGUS [Suspect]
     Indication: HEPATITIS C
     Dosage: NOTE:600 MG-200 MG
     Route: 048
     Dates: start: 20081011, end: 20090208
  3. DIOVAN [Concomitant]
     Route: 048
  4. LOCHOL [Concomitant]
     Route: 048
     Dates: start: 20081213
  5. LOXONIN [Concomitant]
     Dosage: ORAL FORMULATION (NOT OTHERWISE SPECIFIED)
     Route: 048
     Dates: start: 20080510, end: 20090201
  6. HALCION [Concomitant]
     Route: 048
     Dates: start: 20080510

REACTIONS (1)
  - CEREBELLAR HAEMORRHAGE [None]
